FAERS Safety Report 23343674 (Version 1)
Quarter: 2023Q4

REPORT INFORMATION
  Report Type: Spontaneous
  Country: US (occurrence: US)
  Receive Date: 20231227
  Receipt Date: 20231227
  Transmission Date: 20240110
  Serious: No
  Sender: FDA-Public Use
  Company Number: US-PFIZER INC-202300449932

PATIENT
  Age: 63 Year
  Sex: Male

DRUGS (1)
  1. INLYTA [Suspect]
     Active Substance: AXITINIB
     Dosage: 4 TABLETS TWICE DAILY BY MOUTH
     Route: 048
     Dates: start: 20191227

REACTIONS (2)
  - Diarrhoea [Unknown]
  - Blood pressure abnormal [Unknown]
